FAERS Safety Report 7017672-8 (Version None)
Quarter: 2010Q3

REPORT INFORMATION
  Report Type: 
  Country: None (occurrence: None)
  Receive Date: 20100928
  Receipt Date: 20100920
  Transmission Date: 20110219
  Serious: Yes (Other)
  Sender: FDA-Public Use
  Company Number: VE-CUBIST-2010S1000242

PATIENT
  Age: 44 Year
  Sex: Female

DRUGS (3)
  1. CUBICIN [Suspect]
     Indication: CELLULITIS
     Route: 042
     Dates: start: 20100503, end: 20100506
  2. LINEZOLID [Concomitant]
     Indication: PRODUCT USED FOR UNKNOWN INDICATION
     Dates: start: 20100401
  3. ESOMEPRAZOLE [Concomitant]
     Indication: PRODUCT USED FOR UNKNOWN INDICATION

REACTIONS (3)
  - CHILLS [None]
  - HYPERTHERMIA [None]
  - MYALGIA [None]
